FAERS Safety Report 12458948 (Version 2)
Quarter: 2016Q3

REPORT INFORMATION
  Report Type: Spontaneous
  Country: US (occurrence: US)
  Receive Date: 20160613
  Receipt Date: 20160713
  Transmission Date: 20161109
  Serious: Yes (Hospitalization, Other)
  Sender: FDA-Public Use
  Company Number: US-BAXTER-2016BAX025089

PATIENT
  Age: 59 Year
  Sex: Female

DRUGS (1)
  1. DIANEAL LOW CALCIUM PERITONEAL DIALYSIS SOLUTION WITH DEXTROSE [Suspect]
     Active Substance: CALCIUM CHLORIDE\DEXTROSE\MAGNESIUM CHLORIDE\SODIUM CHLORIDE\SODIUM LACTATE
     Indication: END STAGE RENAL DISEASE
     Route: 033
     Dates: start: 201109

REACTIONS (8)
  - Infection [Unknown]
  - Procedural pain [Unknown]
  - Cardiac failure [Unknown]
  - Nephrolithiasis [Unknown]
  - Peritonitis [Unknown]
  - Hernia [Unknown]
  - Cholelithiasis [Unknown]
  - Bacterial infection [Unknown]

NARRATIVE: CASE EVENT DATE: 201605
